FAERS Safety Report 13625329 (Version 1)
Quarter: 2017Q2

REPORT INFORMATION
  Report Type: Spontaneous
  Country: US (occurrence: US)
  Receive Date: 20170607
  Receipt Date: 20170607
  Transmission Date: 20170830
  Serious: Yes (Hospitalization, Other)
  Sender: FDA-Public Use
  Company Number: US-SAGE PRODUCTS, LLC-2021624

PATIENT
  Age: 67 Year
  Sex: Male
  Weight: 98.64 kg

DRUGS (1)
  1. COMFORT SHIELD BARRIER [Suspect]
     Active Substance: DIMETHICONE
     Indication: INCONTINENCE
     Route: 061

REACTIONS (7)
  - Burkholderia cepacia complex infection [None]
  - Product contamination microbial [None]
  - Pneumonia [None]
  - Haemoptysis [Recovered/Resolved]
  - Sputum discoloured [Not Recovered/Not Resolved]
  - Product quality issue [None]
  - Lung infection [Recovered/Resolved]
